FAERS Safety Report 24125956 (Version 1)
Quarter: 2024Q3

REPORT INFORMATION
  Report Type: Spontaneous
  Country: US (occurrence: US)
  Receive Date: 20240723
  Receipt Date: 20240723
  Transmission Date: 20241016
  Serious: No
  Sender: ROCHE
  Company Number: US-ROCHE-10000032953

PATIENT
  Sex: Male

DRUGS (1)
  1. HEMLIBRA [Suspect]
     Active Substance: EMICIZUMAB-KXWH
     Indication: Factor VIII deficiency
     Route: 058

REACTIONS (4)
  - Lip haemorrhage [Recovered/Resolved]
  - Fall [Unknown]
  - Psychomotor hyperactivity [Not Recovered/Not Resolved]
  - Arthralgia [Not Recovered/Not Resolved]
